FAERS Safety Report 21896451 (Version 3)
Quarter: 2023Q1

REPORT INFORMATION
  Report Type: Other
  Country: US (occurrence: None)
  Receive Date: 20230123
  Receipt Date: 20230215
  Transmission Date: 20230417
  Serious: Yes (Other)
  Sender: FDA-Public Use
  Company Number: US-ROCHE-3268045

PATIENT
  Age: 68 Year
  Sex: Female

DRUGS (1)
  1. XELODA [Suspect]
     Active Substance: CAPECITABINE
     Indication: Breast cancer female
     Dosage: TAKE 3 TABLET(S) BY MOUTH TWICE A DAY FOR 7 DAYS ON THEN 7 DAYS OFF, THEN REPEAT
     Route: 048

REACTIONS (1)
  - Neoplasm progression [Unknown]
